FAERS Safety Report 8514298-1 (Version None)
Quarter: 2012Q3

REPORT INFORMATION
  Report Type: 
  Country: None (occurrence: None)
  Receive Date: 20120717
  Receipt Date: 20120712
  Transmission Date: 20120928
  Serious: Yes (Hospitalization)
  Sender: FDA-Public Use
  Company Number: US-TEVA-343606USA

PATIENT
  Age: 74 Year
  Sex: Female
  Weight: 46.853 kg

DRUGS (9)
  1. DOXYCYCLINE [Suspect]
     Indication: NON-SMALL CELL LUNG CANCER
     Dosage: 200 MILLIGRAM;
     Route: 048
     Dates: start: 20120426, end: 20120517
  2. ACETYLSALICYLIC ACID SRT [Concomitant]
     Dates: start: 20120419
  3. ESOMEPRAZOLE MAGNESIUM [Concomitant]
     Dates: start: 20120419
  4. JANUMET [Concomitant]
     Dates: start: 20120419
  5. BENAZEPRIL HYDROCHLORIDE [Concomitant]
     Dates: start: 20120419
  6. GLIMEPIRIDE [Concomitant]
     Dates: start: 20120419
  7. DACOMITINIB [Suspect]
     Indication: NON-SMALL CELL LUNG CANCER
     Dosage: 45 MILLIGRAM;
     Route: 048
     Dates: start: 20120426
  8. ACETAMINOPHEN [Concomitant]
     Dates: start: 20120419
  9. MULTI-VITAMINS [Concomitant]
     Dates: start: 20120419

REACTIONS (2)
  - DEHYDRATION [None]
  - DIARRHOEA [None]
